FAERS Safety Report 7162229-1 (Version None)
Quarter: 2010Q4

REPORT INFORMATION
  Report Type: 
  Country: None (occurrence: None)
  Receive Date: 20101215
  Receipt Date: 20090915
  Transmission Date: 20110411
  Serious: Yes (Other)
  Sender: FDA-Public Use
  Company Number: CZ-PFIZER INC-2009270085

PATIENT

DRUGS (2)
  1. LYRICA [Suspect]
     Indication: QUADRIPARESIS
     Dosage: 75 MG MORNING/150 MG EVENING, 2X/DAY
  2. LYRICA [Suspect]
     Dosage: 75 MG, 1X/DAY
     Dates: start: 20090601

REACTIONS (6)
  - ABDOMINAL PAIN UPPER [None]
  - BLOOD PRESSURE INCREASED [None]
  - BONE PAIN [None]
  - DEPRESSION [None]
  - PARAESTHESIA [None]
  - WITHDRAWAL SYNDROME [None]
